FAERS Safety Report 18563319 (Version 1)
Quarter: 2020Q4

REPORT INFORMATION
  Report Type: Report from Study
  Country: JP (occurrence: JP)
  Receive Date: 20201201
  Receipt Date: 20201201
  Transmission Date: 20210114
  Serious: Yes (Hospitalization)
  Sender: FDA-Public Use
  Company Number: JP-TEVA-2019-JP-1098256

PATIENT
  Age: 74 Year
  Sex: Female
  Weight: 35 kg

DRUGS (9)
  1. FLORINEF ACETATE [Concomitant]
     Active Substance: FLUDROCORTISONE ACETATE
  2. MAGMITT [Concomitant]
     Active Substance: MAGNESIUM OXIDE
  3. SENNOSIDE A+B [Concomitant]
     Active Substance: SENNOSIDES A AND B
  4. LEVODOPA [Concomitant]
     Active Substance: LEVODOPA
  5. AMANTADINE HYDROCHLORIDE. [Concomitant]
     Active Substance: AMANTADINE HYDROCHLORIDE
  6. LOXONIN [Concomitant]
     Active Substance: LOXOPROFEN SODIUM
  7. RASAGILINE MESYLATE. [Suspect]
     Active Substance: RASAGILINE MESYLATE
     Indication: PARKINSON^S DISEASE
     Dosage: 1 MILLIGRAM DAILY;
     Route: 048
     Dates: start: 20190705, end: 20190829
  8. ENTACAPONE. [Concomitant]
     Active Substance: ENTACAPONE
  9. DROXIDOPA [Concomitant]
     Active Substance: DROXIDOPA
     Dates: end: 20190827

REACTIONS (6)
  - Dehydration [Recovered/Resolved]
  - Orthostatic hypotension [Recovering/Resolving]
  - Heat illness [Recovered/Resolved]
  - Decreased appetite [Recovered/Resolved]
  - Fall [Recovered/Resolved]
  - Condition aggravated [Recovering/Resolving]

NARRATIVE: CASE EVENT DATE: 20190729
